FAERS Safety Report 7738054-7 (Version None)
Quarter: 2011Q3

REPORT INFORMATION
  Report Type: 
  Country: None (occurrence: None)
  Receive Date: 20110906
  Receipt Date: 20110825
  Transmission Date: 20111222
  Serious: Yes (Hospitalization)
  Sender: FDA-Public Use
  Company Number: 2011HGS-002474

PATIENT
  Age: 20 Year
  Sex: Female

DRUGS (3)
  1. PREDNISONE [Concomitant]
  2. BENLYSTA [Suspect]
     Indication: SYSTEMIC LUPUS ERYTHEMATOSUS
     Dosage: 10 MG/KG, 1 IN 2 WK, INTRAVENOUS DRIP
     Route: 041
     Dates: start: 20110801, end: 20110801
  3. METHOTREXATE [Concomitant]

REACTIONS (5)
  - WHITE BLOOD CELL COUNT DECREASED [None]
  - RASH [None]
  - ARTHRITIS [None]
  - PSYCHOTIC DISORDER [None]
  - SYSTEMIC LUPUS ERYTHEMATOSUS [None]
